FAERS Safety Report 17582057 (Version 5)
Quarter: 2020Q4

REPORT INFORMATION
  Report Type: Report from Study
  Country: KR (occurrence: KR)
  Receive Date: 20200325
  Receipt Date: 20201203
  Transmission Date: 20210113
  Serious: No
  Sender: FDA-Public Use
  Company Number: KR-CELGENEUS-KOR-20200306486

PATIENT
  Age: 77 Year
  Sex: Male
  Weight: 58 kg

DRUGS (10)
  1. VESICARE [Concomitant]
     Active Substance: SOLIFENACIN SUCCINATE
     Indication: BENIGN PROSTATIC HYPERPLASIA
     Dosage: 5 MG X 2 X 1 DAYS
     Route: 048
     Dates: start: 20200615
  2. DULOXETINE. [Concomitant]
     Active Substance: DULOXETINE
     Indication: BENIGN PROSTATIC HYPERPLASIA
     Dosage: 30 MG X 2 X 1 DAYS
     Route: 048
     Dates: start: 20190325, end: 20200217
  3. MEMANTINE. [Concomitant]
     Active Substance: MEMANTINE
     Indication: PROPHYLAXIS
     Dosage: 10 MG X 1 X 1 DAYS
     Route: 048
     Dates: start: 201908
  4. CHLORPHENIRAMINE MALEATE. [Concomitant]
     Active Substance: CHLORPHENIRAMINE MALEATE
     Indication: PREMEDICATION
     Dosage: 4 MG X 1 X 24 HOURS
     Route: 042
     Dates: start: 20200130, end: 20200130
  5. FEDRATINIB [Suspect]
     Active Substance: FEDRATINIB
     Indication: PRIMARY MYELOFIBROSIS
     Dosage: 400 MG X 1 X 1 DAYS
     Route: 048
     Dates: start: 20200117, end: 20200415
  6. CHLORPHENIRAMINE MALEATE. [Concomitant]
     Active Substance: CHLORPHENIRAMINE MALEATE
     Indication: PREMEDICATION
     Dosage: 4 MG X ONCE
     Route: 042
     Dates: start: 20200130, end: 20200130
  7. CHLORPHENIRAMINE MALEATE. [Concomitant]
     Active Substance: CHLORPHENIRAMINE MALEATE
     Indication: PREMEDICATION
     Dosage: 4 MG X ONCE
     Route: 042
     Dates: start: 20200206, end: 20200206
  8. DEFERASIROX. [Concomitant]
     Active Substance: DEFERASIROX
     Indication: HAEMOSIDEROSIS
     Dosage: 180 MG X 1 X 1 DAYS
     Route: 048
     Dates: start: 20190214
  9. CHLORPHENIRAMINE MALEATE. [Concomitant]
     Active Substance: CHLORPHENIRAMINE MALEATE
     Indication: PREMEDICATION
     Dosage: 4 MG X ONCE
     Route: 042
     Dates: start: 20200220, end: 20200220
  10. DESMOPRESSIN [Concomitant]
     Active Substance: DESMOPRESSIN
     Indication: BENIGN PROSTATIC HYPERPLASIA
     Dosage: 0.1 MG X 1 X 1 DAYS
     Route: 048
     Dates: start: 20191007

REACTIONS (1)
  - Vitamin B1 deficiency [Recovered/Resolved]

NARRATIVE: CASE EVENT DATE: 20200225
